FAERS Safety Report 7324697-1 (Version None)
Quarter: 2011Q1

REPORT INFORMATION
  Report Type: 
  Country: None (occurrence: None)
  Receive Date: 20110207
  Receipt Date: 20110124
  Transmission Date: 20110831
  Serious: Yes (Hospitalization, Other)
  Sender: FDA-Public Use
  Company Number: 2010PROUSA00083

PATIENT
  Age: 52 Year
  Sex: Male
  Weight: 90.2 kg

DRUGS (18)
  1. PROVENGE [Suspect]
     Indication: PROSTATE CANCER METASTATIC
     Dosage: 250 ML, SINGLE, INTRAVENOUS
     Route: 042
     Dates: start: 20100930, end: 20100930
  2. ZOCOR [Concomitant]
  3. DOCUSATE SODIUM (DOCUSATE SODIUM) [Concomitant]
  4. ZOFRAN /00955301/ (ONDANSETRON) [Concomitant]
  5. EFFEXOR XR [Concomitant]
  6. ARMODAFINIL (ARMODAFINIL) [Concomitant]
  7. FAMOTIDINE [Concomitant]
  8. PROTONIX [Concomitant]
  9. NEULASTA (PEGILGRASTIM) [Concomitant]
  10. DIPHENHYDRAMINE (DIPHENHYDRAMINE) [Concomitant]
  11. OMEPRAZOLE [Concomitant]
  12. PREDNISONE TAB [Concomitant]
  13. ASPIRIN [Concomitant]
  14. JEVTANA KIT [Suspect]
     Dosage: 53 MG, SINGLE
     Dates: start: 20101104, end: 20101104
  15. OXYCODONE (OXYCODONE) [Concomitant]
  16. FENTANYL [Concomitant]
  17. DECADRON [Concomitant]
  18. PALONOSETRON (PALONOSETRON) [Concomitant]

REACTIONS (15)
  - PROCEDURAL NAUSEA [None]
  - WHITE BLOOD CELL COUNT NORMAL [None]
  - PLEURAL EFFUSION [None]
  - ANAEMIA [None]
  - PROCEDURAL VOMITING [None]
  - LUNG INFILTRATION [None]
  - METASTASES TO BONE [None]
  - DYSPNOEA [None]
  - METASTASES TO LYMPH NODES [None]
  - THROMBOCYTOPENIA [None]
  - CANCER PAIN [None]
  - INSOMNIA [None]
  - APHAGIA [None]
  - PNEUMONIA [None]
  - TREATMENT FAILURE [None]
